FAERS Safety Report 19964545 (Version 2)
Quarter: 2021Q4

REPORT INFORMATION
  Report Type: Report from Study
  Country: NL (occurrence: NL)
  Receive Date: 20211018
  Receipt Date: 20211112
  Transmission Date: 20220304
  Serious: Yes (Death)
  Sender: FDA-Public Use
  Company Number: NL-CELGENE-NLD-20210606485

PATIENT
  Sex: Female

DRUGS (8)
  1. PREDNISOLONE [Suspect]
     Active Substance: PREDNISOLONE
     Indication: Myelofibrosis
     Dosage: UNK
     Route: 065
  2. LENALIDOMIDE [Suspect]
     Active Substance: LENALIDOMIDE
     Indication: Myelofibrosis
     Dosage: UNK
     Route: 048
  3. REVLIMID [Suspect]
     Active Substance: LENALIDOMIDE
     Indication: Myelofibrosis
     Dosage: UNK
     Route: 048
  4. POLYETHYLENE GLYCOLS [Concomitant]
     Active Substance: POLYETHYLENE GLYCOLS
     Indication: Constipation
     Dosage: UNK
     Route: 048
     Dates: start: 20210228, end: 20210308
  5. FUROSEMIDE                         /00032602/ [Concomitant]
     Indication: Dyspnoea
     Dosage: UNK
     Route: 048
     Dates: start: 20210228, end: 20210308
  6. OXYCODONE [Concomitant]
     Active Substance: OXYCODONE
     Indication: Pain
     Dosage: UNK
     Route: 048
     Dates: start: 20210228, end: 20210308
  7. ASPIRIN [Concomitant]
     Active Substance: ASPIRIN
     Indication: Polycythaemia
     Dosage: UNK
     Dates: start: 2013, end: 20210308
  8. FENTANYL [Concomitant]
     Active Substance: FENTANYL
     Indication: Pain
     Dosage: UNK
     Route: 003
     Dates: start: 20210228, end: 20210308

REACTIONS (3)
  - Condition aggravated [Fatal]
  - Myelofibrosis [Fatal]
  - Anaemia [Unknown]
